FAERS Safety Report 10820232 (Version 1)
Quarter: 2015Q1

REPORT INFORMATION
  Report Type: Report from Study
  Country: US (occurrence: US)
  Receive Date: 20150218
  Receipt Date: 20150218
  Transmission Date: 20150721
  Serious: No
  Sender: FDA-Public Use
  Company Number: US-ABBVIE-14K-163-1297710-00

PATIENT
  Age: 52 Year
  Sex: Female

DRUGS (1)
  1. HUMIRA [Suspect]
     Active Substance: ADALIMUMAB
     Indication: CROHN^S DISEASE
     Route: 065
     Dates: start: 201408

REACTIONS (11)
  - Injection site pain [Not Recovered/Not Resolved]
  - Arthropod sting [Unknown]
  - Local swelling [Recovered/Resolved]
  - Localised infection [Recovering/Resolving]
  - Joint swelling [Recovered/Resolved]
  - Allergic cough [Not Recovered/Not Resolved]
  - Weight decreased [Unknown]
  - Productive cough [Not Recovered/Not Resolved]
  - Animal scratch [Unknown]
  - Allergic respiratory symptom [Not Recovered/Not Resolved]
  - Animal scratch [Unknown]

NARRATIVE: CASE EVENT DATE: 2014
